FAERS Safety Report 12335051 (Version 1)
Quarter: 2016Q2

REPORT INFORMATION
  Report Type: Spontaneous
  Country: ES (occurrence: ES)
  Receive Date: 20160504
  Receipt Date: 20160504
  Transmission Date: 20160815
  Serious: Yes (Other)
  Sender: FDA-Public Use
  Company Number: ES-PFIZER INC-2016237421

PATIENT
  Age: 10 Year
  Sex: Male

DRUGS (2)
  1. ZITHROMAX [Suspect]
     Active Substance: AZITHROMYCIN DIHYDRATE
     Indication: PHARYNGITIS
     Dosage: 200 MG / 5 ML; UNK
     Route: 048
     Dates: start: 20160306, end: 20160306
  2. METALGIAL [Suspect]
     Active Substance: METAMIZOLE SODIUM
     Indication: PHARYNGITIS
     Dosage: 500 MG/ML, UNK
     Route: 048
     Dates: start: 20160306, end: 20160306

REACTIONS (6)
  - Lip oedema [Unknown]
  - Nasal obstruction [Unknown]
  - Eyelid oedema [Unknown]
  - Urticaria [Unknown]
  - Abdominal pain [Unknown]
  - Cough [Unknown]

NARRATIVE: CASE EVENT DATE: 20160306
